FAERS Safety Report 21976068 (Version 1)
Quarter: 2023Q1

REPORT INFORMATION
  Report Type: Spontaneous
  Country: US (occurrence: US)
  Receive Date: 20230210
  Receipt Date: 20230210
  Transmission Date: 20230418
  Serious: Yes (Other)
  Sender: FDA-Public Use
  Company Number: US-ELI_LILLY_AND_COMPANY-US202302002826

PATIENT
  Sex: Female
  Weight: 78.458 kg

DRUGS (3)
  1. TADALAFIL [Suspect]
     Active Substance: TADALAFIL
     Indication: Pulmonary arterial hypertension
     Dosage: UNK UNK, UNKNOWN
     Route: 065
  2. TYVASO [Suspect]
     Active Substance: TREPROSTINIL
     Indication: Pulmonary arterial hypertension
     Dosage: 0.6MG/ML, QID (9 BREATHS)
     Route: 055
     Dates: start: 20211108
  3. AMBRISENTAN [Concomitant]
     Active Substance: AMBRISENTAN
     Indication: Product used for unknown indication

REACTIONS (6)
  - Hepatic necrosis [Unknown]
  - Colitis ulcerative [Unknown]
  - Coagulation time shortened [Unknown]
  - Diarrhoea [Unknown]
  - Abdominal discomfort [Unknown]
  - Epistaxis [Unknown]
